FAERS Safety Report 12842858 (Version 3)
Quarter: 2016Q4

REPORT INFORMATION
  Report Type: Spontaneous
  Country: FR (occurrence: FR)
  Receive Date: 20161013
  Receipt Date: 20161214
  Transmission Date: 20170207
  Serious: Yes (Hospitalization)
  Sender: FDA-Public Use
  Company Number: FR-ORION CORPORATION ORION PHARMA-TREX2016-1965

PATIENT
  Age: 81 Year
  Sex: Female

DRUGS (12)
  1. VENTOLINE [Concomitant]
     Active Substance: ALBUTEROL
     Dosage: STRENGTH: 100 MCG/DOSE; 1 VIAL
     Route: 055
  2. EUPANTOL [Concomitant]
     Active Substance: PANTOPRAZOLE SODIUM
     Dosage: STRENGTH: 40 MG, IN EVENING
     Route: 065
  3. AZYTER [Concomitant]
     Active Substance: AZITHROMYCIN ANHYDROUS
     Dosage: STRENGTH: 15 MG/G, MORNING AND EVENING
     Route: 065
  4. SERESTA [Concomitant]
     Active Substance: OXAZEPAM
     Dosage: STRENGTH: 50 MG, AT BEDTIME
     Route: 065
  5. ZOLPIDEM [Concomitant]
     Active Substance: ZOLPIDEM\ZOLPIDEM TARTRATE
     Dosage: AT BEDTIME
     Route: 065
  6. PREVISCAN [Concomitant]
     Active Substance: FLUINDIONE
     Dosage: 0.5 DF ON EVENING, ALTERNATELY WITH 0.25 DF
     Route: 065
  7. SOTALOL. [Concomitant]
     Active Substance: SOTALOL
     Dosage: STRENGTH: 80 MG, MORNING AND EVENING
     Route: 065
  8. FOLIC ACID. [Concomitant]
     Active Substance: FOLIC ACID
     Dosage: STRENGTH: 5 MG,  MORNING AND EVENING ON TUESDAYS
     Route: 065
  9. DICLOFENAC [Concomitant]
     Active Substance: DICLOFENAC
     Dosage: STRENGTH: 1%
     Route: 065
  10. CETIRIZINE [Concomitant]
     Active Substance: CETIRIZINE HYDROCHLORIDE
     Dosage: STRENGTH: 10 MG, AT NOON
     Route: 065
  11. IMETH [Suspect]
     Active Substance: METHOTREXATE SODIUM
     Indication: RHEUMATOID ARTHRITIS
     Dosage: STRENGTH: 10 MG, ON MONDAYS
     Route: 048
     Dates: start: 201511, end: 20160912
  12. UVEDOSE [Concomitant]
     Active Substance: CHOLECALCIFEROL
     Route: 065

REACTIONS (17)
  - Cheilitis [Unknown]
  - Leukopenia [Recovered/Resolved]
  - Rash generalised [Unknown]
  - Lip haemorrhage [Unknown]
  - Epstein-Barr virus test positive [Recovered/Resolved]
  - Lymphangitis [Unknown]
  - Pseudomonas infection [Recovering/Resolving]
  - Mouth ulceration [Recovered/Resolved]
  - Oesophageal pain [Unknown]
  - Diarrhoea [Unknown]
  - Thrombocytopenia [Recovered/Resolved]
  - Toxicity to various agents [Unknown]
  - Enterobacter test positive [Recovering/Resolving]
  - Medication error [Unknown]
  - Hepatocellular injury [Unknown]
  - Abscess limb [Recovering/Resolving]
  - Abscess bacterial [Recovering/Resolving]

NARRATIVE: CASE EVENT DATE: 201609
